FAERS Safety Report 24006241 (Version 2)
Quarter: 2024Q4

REPORT INFORMATION
  Report Type: Report from Study
  Country: ZA (occurrence: ZA)
  Receive Date: 20240624
  Receipt Date: 20241210
  Transmission Date: 20250115
  Serious: Yes (Hospitalization, Other)
  Sender: TAKEDA
  Company Number: ZA-TAKEDA-2024TUS062404

PATIENT
  Age: 2 Year
  Sex: Female

DRUGS (3)
  1. HUMAN IMMUNOGLOBULIN G [Suspect]
     Active Substance: HUMAN IMMUNOGLOBULIN G
     Indication: Immunodeficiency common variable
     Dosage: UNK UNK, 1/WEEK
     Dates: start: 20240221
  2. HUMAN IMMUNOGLOBULIN G [Suspect]
     Active Substance: HUMAN IMMUNOGLOBULIN G
     Dosage: UNK UNK, Q2WEEKS
     Dates: start: 20240222
  3. HUMAN IMMUNOGLOBULIN G [Suspect]
     Active Substance: HUMAN IMMUNOGLOBULIN G
     Dosage: UNK UNK, 1/WEEK

REACTIONS (6)
  - Rash [Recovering/Resolving]
  - Haemophilus bacteraemia [Recovering/Resolving]
  - Streptococcal bacteraemia [Recovering/Resolving]
  - COVID-19 [Recovering/Resolving]
  - Blood iron decreased [Recovering/Resolving]
  - Vaccine induced antibody absent [Recovering/Resolving]

NARRATIVE: CASE EVENT DATE: 20240614
